FAERS Safety Report 21385097 (Version 5)
Quarter: 2022Q4

REPORT INFORMATION
  Report Type: Spontaneous
  Country: US (occurrence: US)
  Receive Date: 20220928
  Receipt Date: 20221025
  Transmission Date: 20230113
  Serious: No
  Sender: FDA-Public Use
  Company Number: US-PFIZER INC-202201139615

PATIENT
  Age: 79 Year
  Sex: Female

DRUGS (3)
  1. SOMAVERT [Suspect]
     Active Substance: PEGVISOMANT
     Indication: Brain neoplasm
     Dosage: INJECTS LEGS TWO TIMES A WEEK
  2. SOMAVERT [Suspect]
     Active Substance: PEGVISOMANT
     Indication: Brain operation
  3. PASIREOTIDE [Concomitant]
     Active Substance: PASIREOTIDE
     Indication: Pituitary tumour
     Dosage: UNK (ONCE MONTHLY INJECTION)

REACTIONS (4)
  - Syringe issue [Unknown]
  - Needle issue [Unknown]
  - Off label use [Unknown]
  - Off label use [Unknown]
